FAERS Safety Report 7043766-7 (Version None)
Quarter: 2010Q4

REPORT INFORMATION
  Report Type: 
  Country: None (occurrence: None)
  Receive Date: 20101013
  Receipt Date: 20101004
  Transmission Date: 20110411
  Serious: Yes (Hospitalization)
  Sender: FDA-Public Use
  Company Number: US-B.I. PHARMACEUTICALS,INC./RIDGEFIELD-2010-BP-00921BP

PATIENT
  Sex: Male
  Weight: 95.25 kg

DRUGS (2)
  1. MIRAPEX [Suspect]
     Indication: PARKINSON'S DISEASE
     Route: 048
     Dates: start: 20071121, end: 20091101
  2. NORVASC [Concomitant]
     Indication: HYPERTENSION

REACTIONS (8)
  - DEPRESSION [None]
  - EMOTIONAL DISTRESS [None]
  - HYPERPHAGIA [None]
  - HYPERSEXUALITY [None]
  - MAJOR DEPRESSION [None]
  - PATHOLOGICAL GAMBLING [None]
  - SUICIDE ATTEMPT [None]
  - WEIGHT INCREASED [None]
